FAERS Safety Report 16559553 (Version 1)
Quarter: 2020Q3

REPORT INFORMATION
  Report Type: Spontaneous
  Country: DE (occurrence: DE)
  Receive Date: 20190711
  Receipt Date: 20190711
  Transmission Date: 20201104
  Serious: Yes (Hospitalization)
  Sender: FDA-Public Use
  Company Number: IND-DE-009507513-1907DEU003727

PATIENT
  Age: 62 Year
  Sex: Female

DRUGS (1)
  1. ETORICOXIB. [Suspect]
     Active Substance: ETORICOXIB
     Dosage: 90 MG ON DEMAND UP TO 2X DAILY

REACTIONS (4)
  - Faeces soft [Unknown]
  - Weight decreased [Unknown]
  - Product prescribing error [Unknown]
  - Nausea [Unknown]
